FAERS Safety Report 13123103 (Version 2)
Quarter: 2019Q3

REPORT INFORMATION
  Report Type: Spontaneous
  Country: NL (occurrence: NL)
  Receive Date: 20170117
  Receipt Date: 20190729
  Transmission Date: 20191004
  Serious: Yes (Life-Threatening, Hospitalization, Other)
  Sender: FDA-Public Use
  Company Number: PHHY2017NL003902

PATIENT
  Age: 64 Year
  Sex: Female

DRUGS (11)
  1. ESKETAMINE [Suspect]
     Active Substance: ESKETAMINE
     Indication: PRODUCT USED FOR UNKNOWN INDICATION
     Dosage: 25 MG, UNK
     Route: 065
  2. DESFLURANE. [Concomitant]
     Active Substance: DESFLURANE
     Indication: VASOPLEGIA SYNDROME
     Dosage: UNK
     Route: 065
  3. QUETIAPINE. [Suspect]
     Active Substance: QUETIAPINE
     Indication: DEPRESSION
     Dosage: UNK
     Route: 065
  4. METHYLENE BLUE. [Suspect]
     Active Substance: METHYLENE BLUE
     Indication: VASOPLEGIA SYNDROME
     Dosage: 2 MG/KG, UNK
     Route: 065
  5. VASOPRESSIN. [Suspect]
     Active Substance: VASOPRESSIN
     Indication: VASOPLEGIA SYNDROME
     Route: 065
  6. PAROXETINE HYDROCHLORIDE. [Suspect]
     Active Substance: PAROXETINE HYDROCHLORIDE
     Indication: DEPRESSION
     Route: 065
  7. GRANISETRON [Suspect]
     Active Substance: GRANISETRON
     Indication: VASOPLEGIA SYNDROME
     Dosage: 1 MG, UNK
     Route: 065
  8. MIDAZOLAM [Concomitant]
     Active Substance: MIDAZOLAM HYDROCHLORIDE
     Indication: SEDATION
     Dosage: UNK
     Route: 065
  9. KETAMINE [Concomitant]
     Active Substance: KETAMINE
     Indication: VASOPLEGIA SYNDROME
     Dosage: 25 MG, UNK
     Route: 065
  10. NOREPINEPHRINE. [Concomitant]
     Active Substance: NOREPINEPHRINE
     Indication: HYPOTENSION
     Dosage: INFUSION AND INTERMITTENT BOLUSES
     Route: 065
  11. CLONAZEPAM. [Concomitant]
     Active Substance: CLONAZEPAM
     Indication: DEPRESSION
     Dosage: UNK
     Route: 065

REACTIONS (12)
  - Neurological decompensation [Unknown]
  - Body temperature increased [Unknown]
  - Renal impairment [Unknown]
  - Hyperkalaemia [Unknown]
  - Aspartate aminotransferase increased [Recovered/Resolved]
  - Serotonin syndrome [Recovered/Resolved]
  - Blood creatine phosphokinase increased [Recovered/Resolved]
  - Hypertonia [Unknown]
  - Hypotension [Unknown]
  - Mydriasis [Unknown]
  - Nystagmus [Unknown]
  - Somnolence [Unknown]
